FAERS Safety Report 5156821-3 (Version None)
Quarter: 2006Q4

REPORT INFORMATION
  Report Type: 
  Country: None (occurrence: None)
  Receive Date: 20061115
  Receipt Date: 20061107
  Transmission Date: 20070319
  Serious: Yes (Death, Life-Threatening)
  Sender: FDA-Public Use
  Company Number: HQWYE789914FEB06

PATIENT
  Age: 76 Year
  Sex: Male

DRUGS (12)
  1. MYLOTARG [Suspect]
     Indication: ACUTE MYELOID LEUKAEMIA
     Dosage: A SINGLE 9MG/M^2 DOSE INTRAVENOUS DRIP
     Route: 041
     Dates: start: 20051017, end: 20051017
  2. TRANSAMIN               (TRANEXAMIC ACID) [Concomitant]
  3. FRAGMIN [Concomitant]
  4. HUMULIN R [Concomitant]
  5. OXYCONTIN [Concomitant]
  6. NITRODERM [Concomitant]
  7. DIOVAN [Concomitant]
  8. ADALAT [Concomitant]
  9. ALDACTONE [Concomitant]
  10. LASIX [Concomitant]
  11. SIGMART         (NICORANDIL) [Concomitant]
  12. PAXIL [Concomitant]

REACTIONS (2)
  - PNEUMONIA STAPHYLOCOCCAL [None]
  - SUBDURAL HAEMATOMA [None]
